FAERS Safety Report 6693995-7 (Version None)
Quarter: 2010Q2

REPORT INFORMATION
  Report Type: 
  Country: None (occurrence: None)
  Receive Date: 20100423
  Receipt Date: 20100420
  Transmission Date: 20101027
  Serious: Yes (Other)
  Sender: FDA-Public Use
  Company Number: CHNY2010DK00465

PATIENT
  Sex: Male
  Weight: 99 kg

DRUGS (1)
  1. OTRIVIN [Suspect]
     Indication: NASAL CONGESTION
     Dosage: 1 MG/ML DAILY
     Route: 045
     Dates: end: 20091002

REACTIONS (3)
  - ATRIAL FIBRILLATION [None]
  - BLOOD PRESSURE INCREASED [None]
  - HEART RATE INCREASED [None]
